FAERS Safety Report 5115441-7 (Version None)
Quarter: 2006Q3

REPORT INFORMATION
  Report Type: 
  Country: None (occurrence: None)
  Receive Date: 20060922
  Receipt Date: 20060913
  Transmission Date: 20061208
  Serious: Yes (Other)
  Sender: FDA-Public Use
  Company Number: 2006111242

PATIENT
  Age: 71 Year
  Sex: Female

DRUGS (3)
  1. LIPITOR [Suspect]
     Indication: HYPERCHOLESTEROLAEMIA
     Dosage: 20 MG, ORAL
     Route: 048
     Dates: start: 20041201, end: 20060905
  2. AMLODIPINE [Suspect]
     Indication: HYPERTENSION
     Dosage: 5 MG, ORAL
     Route: 048
     Dates: end: 20060905
  3. VALSARTAN [Suspect]
     Indication: HYPERTENSION
     Dosage: 40 MG, ORAL
     Route: 048
     Dates: end: 20060905

REACTIONS (6)
  - ALANINE AMINOTRANSFERASE INCREASED [None]
  - ASPARTATE AMINOTRANSFERASE INCREASED [None]
  - BLOOD CHOLESTEROL INCREASED [None]
  - GAMMA-GLUTAMYLTRANSFERASE INCREASED [None]
  - HEPATIC FUNCTION ABNORMAL [None]
  - PRURITUS [None]
